FAERS Safety Report 4721289-5 (Version None)
Quarter: 2005Q3

REPORT INFORMATION
  Report Type: 
  Country: None (occurrence: None)
  Receive Date: 20050721
  Receipt Date: 20040420
  Transmission Date: 20060218
  Serious: No
  Sender: FDA-Public Use
  Company Number: US-BRISTOL-MYERS SQUIBB COMPANY-12565503

PATIENT
  Age: 85 Year
  Sex: Male
  Weight: 63 kg

DRUGS (5)
  1. COUMADIN [Suspect]
     Indication: THROMBOSIS
     Dosage: BEGAN 1997, STOPPED JAN-02 FOR 10 DAYS, RESTARTED, STOPPED IN 2004-NOT RESTARTED
     Route: 048
     Dates: start: 19970101
  2. COUMADIN [Suspect]
     Indication: CEREBROVASCULAR ACCIDENT
     Dosage: BEGAN 1997, STOPPED JAN-02 FOR 10 DAYS, RESTARTED, STOPPED IN 2004-NOT RESTARTED
     Route: 048
     Dates: start: 19970101
  3. SYNTHROID [Concomitant]
  4. CAPTOPRIL [Concomitant]
  5. COREG [Concomitant]

REACTIONS (3)
  - PRURITUS [None]
  - RASH [None]
  - SKIN HAEMORRHAGE [None]
